FAERS Safety Report 7766263-X (Version None)
Quarter: 2011Q3

REPORT INFORMATION
  Report Type: 
  Country: None (occurrence: None)
  Receive Date: 20110922
  Receipt Date: 20110913
  Transmission Date: 20111222
  Serious: Yes (Hospitalization)
  Sender: FDA-Public Use
  Company Number: US-BRISTOL-MYERS SQUIBB COMPANY-14376917

PATIENT
  Age: 73 Year
  Sex: Female
  Weight: 66 kg

DRUGS (15)
  1. FERROUS SULFATE TAB [Concomitant]
     Route: 048
  2. TYLENOL-500 [Concomitant]
  3. ZINC SULFATE [Concomitant]
     Route: 048
  4. ATIVAN [Concomitant]
     Dosage: Q8H
     Route: 048
  5. PEMETREXED DISODIUM [Suspect]
     Indication: NON-SMALL CELL LUNG CANCER
     Dosage: INTERRUPTED ON 14NOV05. RESUMED ON 05DEC2005. 885 MG, IV TAKEN ON 05DEC2005.
     Route: 042
     Dates: start: 20051205
  6. VITAMIN B-12 [Concomitant]
     Dosage: 25 MG/M2
     Route: 030
  7. COMBIVENT [Concomitant]
     Dosage: 1 DOSAGE FORM = 2 PUFFS
     Route: 055
  8. VICODIN [Concomitant]
     Dosage: 1 DOSAGE FORM = 7.5/500 1 TAB ALSO TAKE 1-2 TABS Q6H
     Route: 048
  9. MULTI-VITAMIN [Concomitant]
     Dosage: 1 DOSAGE FORM = 1 TAB
     Route: 048
  10. MEGACE [Concomitant]
  11. ASCORBIC ACID [Concomitant]
     Route: 048
  12. CETUXIMAB [Suspect]
     Indication: NON-SMALL CELL LUNG CANCER
     Dosage: INTERRUPTED ON 21NOV05RESUMED ON 05-DEC-2005. FINAL INFUSION 12-DEC-2005. ERG 2: 5-12DEC2005
     Route: 042
     Dates: start: 20051114
  13. SPIRIVA [Concomitant]
     Dosage: 1 DOSAGE FORM = 1 CAP, 2 PUFFS DAILY
     Route: 055
  14. ZOFRAN [Concomitant]
     Dosage: Q6H
     Route: 042
  15. PHENERGAN HCL [Concomitant]
     Dosage: Q6H
     Route: 042

REACTIONS (1)
  - ATRIAL FIBRILLATION [None]
